FAERS Safety Report 11091525 (Version 4)
Quarter: 2016Q2

REPORT INFORMATION
  Report Type: Spontaneous
  Country: US (occurrence: US)
  Receive Date: 20150505
  Receipt Date: 20160506
  Transmission Date: 20160815
  Serious: Yes (Other)
  Sender: FDA-Public Use
  Company Number: US-PFIZER INC-2015149539

PATIENT
  Age: 56 Year
  Sex: Female
  Weight: 69 kg

DRUGS (3)
  1. IBRANCE [Suspect]
     Active Substance: PALBOCICLIB
     Dosage: UNK
  2. IBRANCE [Suspect]
     Active Substance: PALBOCICLIB
     Dosage: UNK
  3. IBRANCE [Suspect]
     Active Substance: PALBOCICLIB
     Indication: BREAST CANCER METASTATIC
     Dosage: 125 MG, CYCLIC (1CAP DAILY FOR 21 DAYS EVERY 28 DAYS)
     Route: 048
     Dates: start: 20150318

REACTIONS (4)
  - Neutropenia [Unknown]
  - Rash [Recovered/Resolved]
  - Irritability [Unknown]
  - Alopecia [Unknown]

NARRATIVE: CASE EVENT DATE: 20150601
